FAERS Safety Report 19300049 (Version 1)
Quarter: 2021Q2

REPORT INFORMATION
  Report Type: Spontaneous
  Country: US (occurrence: US)
  Receive Date: 20210525
  Receipt Date: 20210525
  Transmission Date: 20210717
  Serious: No
  Sender: FDA-Public Use
  Company Number: US-TEVA-2021-US-1909111

PATIENT
  Age: 60 Year
  Sex: Female

DRUGS (19)
  1. AUGMENTIN [Concomitant]
     Active Substance: AMOXICILLIN\CLAVULANATE POTASSIUM
     Dosage: 500?125
  2. CEFTIN [Concomitant]
     Active Substance: CEFUROXIME AXETIL
  3. NORCO [Concomitant]
     Active Substance: ACETAMINOPHEN\HYDROCODONE BITARTRATE
     Dosage: 5?325
  4. RESTORIL [Concomitant]
     Active Substance: TEMAZEPAM
  5. HYDROCHLOROTHIAZIDE. [Concomitant]
     Active Substance: HYDROCHLOROTHIAZIDE
     Dosage: 12.5
  6. MECLIZINE [Concomitant]
     Active Substance: MECLIZINE HYDROCHLORIDE
  7. MELOXICAM. [Concomitant]
     Active Substance: MELOXICAM
  8. CHLORTHALIDONE. [Concomitant]
     Active Substance: CHLORTHALIDONE
  9. PREDNISONE. [Concomitant]
     Active Substance: PREDNISONE
  10. CIPRO [Concomitant]
     Active Substance: CIPROFLOXACIN HYDROCHLORIDE
  11. DIFLUCAN [Concomitant]
     Active Substance: FLUCONAZOLE
  12. SILENOR [Concomitant]
     Active Substance: DOXEPIN HYDROCHLORIDE
  13. BACTRIM DS [Concomitant]
     Active Substance: SULFAMETHOXAZOLE\TRIMETHOPRIM
     Dosage: 800?160
  14. MEDROL [Concomitant]
     Active Substance: METHYLPREDNISOLONE
  15. AJOVY [Suspect]
     Active Substance: FREMANEZUMAB-VFRM
     Indication: HEADACHE
     Dosage: LAST TAKEN AJOVY ON 20?APR?2021
     Route: 065
     Dates: start: 20210319
  16. CLINDAMYCIN. [Concomitant]
     Active Substance: CLINDAMYCIN
  17. LEVAQUIN [Concomitant]
     Active Substance: LEVOFLOXACIN
  18. AMOXICILLIN. [Concomitant]
     Active Substance: AMOXICILLIN
  19. CLARITIN [Concomitant]
     Active Substance: LORATADINE

REACTIONS (4)
  - Product use in unapproved indication [Unknown]
  - Rash [Unknown]
  - Scar [Unknown]
  - Pruritus [Unknown]

NARRATIVE: CASE EVENT DATE: 202103
